FAERS Safety Report 11104945 (Version 1)
Quarter: 2015Q2

REPORT INFORMATION
  Report Type: Spontaneous
  Country: CH (occurrence: CH)
  Receive Date: 20150511
  Receipt Date: 20150511
  Transmission Date: 20150821
  Serious: Yes (Death)
  Sender: FDA-Public Use
  Company Number: CH-BAYER-2015-194453

PATIENT
  Age: 68 Year
  Sex: Female

DRUGS (9)
  1. CONCOR [Suspect]
     Active Substance: BISOPROLOL FUMARATE
     Indication: ATRIAL FIBRILLATION
     Dosage: 2.5 MG, BID
     Route: 048
     Dates: end: 20150225
  2. RAMIPRIL. [Concomitant]
     Active Substance: RAMIPRIL
  3. PANTOZOL [Concomitant]
     Active Substance: PANTOPRAZOLE SODIUM
  4. ASPIRIN CARDIO [Suspect]
     Active Substance: ASPIRIN
     Indication: CORONARY ARTERY DISEASE
     Dosage: 100 MG, QD
     Route: 048
     Dates: start: 20150218, end: 20150225
  5. TOREM [Concomitant]
     Active Substance: TORSEMIDE
  6. MARCOUMAR [Suspect]
     Active Substance: PHENPROCOUMON
     Indication: ATRIAL FIBRILLATION
     Dosage: 1.5 DF, QD
     Route: 048
     Dates: start: 20150224, end: 20150225
  7. ATORVASTATIN [Concomitant]
     Active Substance: ATORVASTATIN
  8. DAFALGAN [Concomitant]
     Active Substance: ACETAMINOPHEN
  9. FRAGMIN [Suspect]
     Active Substance: DALTEPARIN SODIUM
     Indication: ATRIAL FIBRILLATION
     Dosage: 12500 IU, QD
     Route: 058
     Dates: start: 20150224, end: 20150225

REACTIONS (5)
  - Haemorrhagic diathesis [Fatal]
  - Atrial fibrillation [Fatal]
  - Blood pressure decreased [Fatal]
  - Acute myocardial infarction [Fatal]
  - Cerebral haemorrhage [Fatal]

NARRATIVE: CASE EVENT DATE: 20150226
